FAERS Safety Report 21536156 (Version 3)
Quarter: 2022Q4

REPORT INFORMATION
  Report Type: Spontaneous
  Country: IN (occurrence: IN)
  Receive Date: 20221101
  Receipt Date: 20221221
  Transmission Date: 20230112
  Serious: Yes (Death, Hospitalization, Other)
  Sender: FDA-Public Use
  Company Number: IN-PFIZER INC-202101458653

PATIENT
  Age: 62 Year
  Sex: Male
  Weight: 56 kg

DRUGS (2)
  1. LORLATINIB [Suspect]
     Active Substance: LORLATINIB
     Indication: Lung neoplasm malignant
     Dosage: 100 MG, 1X/DAY
     Route: 048
     Dates: start: 20210927, end: 202206
  2. LORLATINIB [Suspect]
     Active Substance: LORLATINIB
     Indication: Non-small cell lung cancer

REACTIONS (11)
  - Multiple organ dysfunction syndrome [Fatal]
  - Neoplasm progression [Fatal]
  - Full blood count decreased [Not Recovered/Not Resolved]
  - Respiratory disorder [Unknown]
  - Platelet count decreased [Unknown]
  - Pain [Unknown]
  - Lipids increased [Unknown]
  - Blood cholesterol increased [Not Recovered/Not Resolved]
  - Product dose omission issue [Unknown]
  - Cough [Unknown]
  - Asthenia [Unknown]

NARRATIVE: CASE EVENT DATE: 20210927
